FAERS Safety Report 12213944 (Version 1)
Quarter: 2016Q1

REPORT INFORMATION
  Report Type: Spontaneous
  Country: US (occurrence: None)
  Receive Date: 20160325
  Receipt Date: 20160325
  Transmission Date: 20160526
  Serious: No
  Sender: FDA-Public Use
  Company Number: None

PATIENT
  Age: 66 Year
  Sex: Female
  Weight: 56.25 kg

DRUGS (1)
  1. FORTEO [Suspect]
     Active Substance: TERIPARATIDE
     Indication: OSTEOPOROSIS
     Route: 058
     Dates: start: 20160311, end: 20160323

REACTIONS (11)
  - Diarrhoea [None]
  - Dysphonia [None]
  - Bone pain [None]
  - Condition aggravated [None]
  - Pain [None]
  - Nausea [None]
  - Migraine [None]
  - Fatigue [None]
  - Pyrexia [None]
  - Vomiting [None]
  - Oropharyngeal pain [None]

NARRATIVE: CASE EVENT DATE: 20160312
